FAERS Safety Report 4811943-9 (Version None)
Quarter: 2005Q4

REPORT INFORMATION
  Report Type: 
  Country: None (occurrence: None)
  Receive Date: 20051027
  Receipt Date: 20051027
  Transmission Date: 20060501
  Serious: Yes (Other)
  Sender: FDA-Public Use
  Company Number: None

PATIENT
  Age: 66 Year
  Sex: Female
  Weight: 69 kg

DRUGS (1)
  1. PREGABALIN    50 MG     PFIZER [Suspect]
     Indication: NEURALGIA
     Dosage: 150 MG   BID   PO
     Route: 048

REACTIONS (5)
  - CONFUSIONAL STATE [None]
  - DELIRIUM [None]
  - INADEQUATE ANALGESIA [None]
  - PARANOIA [None]
  - PSYCHOTIC DISORDER [None]
